FAERS Safety Report 9976079 (Version 2)
Quarter: 2014Q1

REPORT INFORMATION
  Report Type: Spontaneous
  Country: US (occurrence: US)
  Receive Date: 20140306
  Receipt Date: 20140324
  Transmission Date: 20141002
  Serious: Yes (Hospitalization, Disabling, Other)
  Sender: FDA-Public Use
  Company Number: US-RB-064114-14

PATIENT
  Age: 54 Year
  Sex: Male

DRUGS (7)
  1. SUBOXONE TABLET [Suspect]
     Indication: DRUG DEPENDENCE
     Route: 060
     Dates: start: 2007, end: 2011
  2. SUBOXONE FILM [Suspect]
     Indication: DRUG DEPENDENCE
     Dosage: SUBOXONE FILM
     Route: 060
     Dates: start: 2011
  3. SUBOXONE FILM [Suspect]
     Dosage: SUBOXONE FILM; MEDICALY TAPERED TO 8 MG/DAILY; CUTTING THE FILM
     Route: 060
     Dates: end: 201309
  4. SUBOXONE FILM [Suspect]
     Dosage: SUBOXONE FILM; PRESCRIBED 24 MG/DAILY, TAKES LESS THAN PRESCRIBED (8 TO 12 MG DAILY)
     Route: 060
     Dates: start: 201309
  5. SUBOXONE FILM [Suspect]
     Dosage: SUBOXONE FILM; MEDICALY TAPERED IN PREPARATION FOR SURGERY; DOSING DETAILS UNKNOWN
     Route: 060
  6. CLONAZEPAM [Concomitant]
     Indication: PANIC ATTACK
     Route: 065
  7. CLONAZEPAM [Concomitant]
     Indication: PANIC ATTACK
     Route: 065

REACTIONS (8)
  - Rotator cuff syndrome [Not Recovered/Not Resolved]
  - Wrong technique in drug usage process [Not Recovered/Not Resolved]
  - Road traffic accident [Recovered/Resolved]
  - Tendon rupture [Not Recovered/Not Resolved]
  - Rib fracture [Recovered/Resolved]
  - Disability [Not Recovered/Not Resolved]
  - Anxiety [Not Recovered/Not Resolved]
  - Intentional underdose [Not Recovered/Not Resolved]
